FAERS Safety Report 6593285-7 (Version None)
Quarter: 2010Q1

REPORT INFORMATION
  Report Type: 
  Country: None (occurrence: None)
  Receive Date: 20100222
  Receipt Date: 20090202
  Transmission Date: 20100710
  Serious: Yes (Other)
  Sender: FDA-Public Use
  Company Number: US-BRISTOL-MYERS SQUIBB COMPANY-14396600

PATIENT
  Age: 56 Year
  Sex: Female

DRUGS (12)
  1. ORENCIA [Suspect]
     Indication: RHEUMATOID ARTHRITIS
     Dosage: HAD BEEN RECEIVING ORENCIA FOR 1 YEAR; DURATION OF THE INFUSION WAS 30 MINUTES
     Route: 042
     Dates: start: 20070823, end: 20081020
  2. MEDROL [Concomitant]
  3. MOBIC [Concomitant]
  4. FOLIC ACID [Concomitant]
  5. AMBIEN [Concomitant]
     Dosage: QHS
  6. OMEGA 3 FATTY ACID [Concomitant]
  7. VITAMIN C [Concomitant]
  8. FLAXSEED OIL [Concomitant]
  9. CALCIUM + VITAMIN D [Concomitant]
  10. EVENING PRIMROSE OIL [Concomitant]
  11. METHOTREXATE [Concomitant]
     Dosage: METHOTREXATE 2.5 MG TABS; DOSAGE FORM : TABS;
     Dates: start: 20040101
  12. PLAQUENIL [Concomitant]
     Route: 048

REACTIONS (1)
  - ANAPHYLACTIC REACTION [None]
